FAERS Safety Report 21739852 (Version 1)
Quarter: 2022Q4

REPORT INFORMATION
  Report Type: Spontaneous
  Country: US (occurrence: None)
  Receive Date: 20221215
  Receipt Date: 20221215
  Transmission Date: 20230112
  Serious: Yes (Hospitalization)
  Sender: FDA-Public Use
  Company Number: None

PATIENT
  Age: 56 Year
  Sex: Male
  Weight: 83.91 kg

DRUGS (1)
  1. VIVITROL [Suspect]
     Active Substance: NALTREXONE
     Indication: Alcoholism
     Dates: start: 20211130, end: 20211130

REACTIONS (8)
  - Injection site discomfort [None]
  - Dizziness [None]
  - Burning sensation [None]
  - Hyperhidrosis [None]
  - Eye movement disorder [None]
  - Muscle rigidity [None]
  - Seizure [None]
  - Anal incontinence [None]

NARRATIVE: CASE EVENT DATE: 20211130
